FAERS Safety Report 9813007 (Version 1)
Quarter: 2014Q1

REPORT INFORMATION
  Report Type: Spontaneous
  Country: IR (occurrence: None)
  Receive Date: 20140108
  Receipt Date: 20140108
  Transmission Date: 20141002
  Serious: Yes (Other)
  Sender: FDA-Public Use
  Company Number: IR-ALKEM-000452

PATIENT
  Age: 57 Year
  Sex: Male

DRUGS (3)
  1. AMLODIPINE (AMLODIPINE) [Suspect]
     Indication: HYPERTENSIVE CRISIS
  2. CAPTOPRIL [Suspect]
     Indication: HYPERTENSIVE CRISIS
     Route: 048
  3. ASA (ASA) [Concomitant]

REACTIONS (1)
  - Headache [None]
